FAERS Safety Report 5736042-3 (Version None)
Quarter: 2008Q2

REPORT INFORMATION
  Report Type: 
  Country: None (occurrence: None)
  Receive Date: 20080513
  Receipt Date: 20080507
  Transmission Date: 20081010
  Serious: Yes (Death)
  Sender: FDA-Public Use
  Company Number: US-BAYER-200822289NA

PATIENT
  Age: 74 Year
  Sex: Female

DRUGS (1)
  1. TRASYLOL [Suspect]
     Indication: AORTIC VALVE REPLACEMENT
     Dates: start: 20050401

REACTIONS (5)
  - EMOTIONAL DISTRESS [None]
  - INJURY [None]
  - PAIN [None]
  - RENAL FAILURE ACUTE [None]
  - UNEVALUABLE EVENT [None]
